FAERS Safety Report 8573046-X (Version None)
Quarter: 2012Q2

REPORT INFORMATION
  Report Type: 
  Country: None (occurrence: None)
  Receive Date: 20120418
  Receipt Date: 20101208
  Transmission Date: 20120825
  Serious: Yes (Other)
  Sender: FDA-Public Use
  Company Number: PHHY2010US85224

PATIENT
  Age: 55 Year
  Sex: Male

DRUGS (2)
  1. DIOVAN HCT [Suspect]
  2. VALTURNA [Suspect]
     Dosage: ONCE A DAY, ORAL
     Route: 048

REACTIONS (1)
  - BLOOD PRESSURE SYSTOLIC INCREASED [None]
